FAERS Safety Report 17174472 (Version 2)
Quarter: 2020Q3

REPORT INFORMATION
  Report Type: Spontaneous
  Country: US (occurrence: US)
  Receive Date: 20191219
  Receipt Date: 20200702
  Transmission Date: 20201102
  Serious: Yes (Other)
  Sender: FDA-Public Use
  Company Number: US-009507513-1912USA008419

PATIENT
  Age: 2 Day
  Sex: Male
  Weight: 3.65 kg

DRUGS (7)
  1. KETAMINE [Concomitant]
     Active Substance: KETAMINE
     Indication: INDUCTION OF ANAESTHESIA
     Dosage: 1.39 MG/KG
  2. ROPIVACAINE. [Concomitant]
     Active Substance: ROPIVACAINE HYDROCHLORIDE
     Indication: ANAESTHESIA
     Dosage: 2.19 MG/KG
  3. CEFAZOLIN [Concomitant]
     Active Substance: CEFAZOLIN
     Indication: ANTIBIOTIC PROPHYLAXIS
  4. BRIDION [Suspect]
     Active Substance: SUGAMMADEX
     Dosage: 1.39 MG/KG
  5. BRIDION [Suspect]
     Active Substance: SUGAMMADEX
     Indication: NEUROMUSCULAR BLOCKADE REVERSAL
     Dosage: 2.78 MG/KG
  6. BRIDION [Suspect]
     Active Substance: SUGAMMADEX
     Dosage: 4.44 MG/KG
  7. ROCURONIUM BROMIDE. [Concomitant]
     Active Substance: ROCURONIUM BROMIDE
     Indication: NEUROMUSCULAR BLOCKADE
     Dosage: 0.83 MG/KG, TOTAL DOSE AT THE END OF THE SURGERY WAS 1.94 MG/KG

REACTIONS (3)
  - Postoperative respiratory distress [Recovering/Resolving]
  - Off label use [Unknown]
  - Recurrence of neuromuscular blockade [Recovering/Resolving]
